FAERS Safety Report 20452535 (Version 3)
Quarter: 2022Q1

REPORT INFORMATION
  Report Type: Report from Study
  Country: DZ (occurrence: None)
  Receive Date: 20220210
  Receipt Date: 20220324
  Transmission Date: 20220424
  Serious: Yes (Hospitalization)
  Sender: FDA-Public Use
  Company Number: DZ-Merck Healthcare KGaA-9267702

PATIENT
  Age: 29 Year
  Sex: Female

DRUGS (4)
  1. REBIF [Suspect]
     Active Substance: INTERFERON BETA-1A
     Indication: Multiple sclerosis
     Route: 058
     Dates: start: 20170404, end: 20210317
  2. REBIF [Suspect]
     Active Substance: INTERFERON BETA-1A
     Route: 058
     Dates: start: 20211220
  3. REBIF [Suspect]
     Active Substance: INTERFERON BETA-1A
     Dosage: 50% DOSE
     Route: 058
  4. ACETAMINOPHEN [Concomitant]
     Active Substance: ACETAMINOPHEN
     Indication: Product used for unknown indication

REACTIONS (7)
  - Amniotic fluid volume decreased [Unknown]
  - Placental calcification [Unknown]
  - Suppressed lactation [Unknown]
  - Anaemia [Unknown]
  - Maternal exposure during pregnancy [Recovered/Resolved]
  - Live birth [Recovered/Resolved]
  - Breast feeding [Unknown]

NARRATIVE: CASE EVENT DATE: 20210301
